FAERS Safety Report 9296550 (Version 1)
Quarter: 2013Q2

REPORT INFORMATION
  Report Type: Spontaneous
  Country: US (occurrence: US)
  Receive Date: 20130517
  Receipt Date: 20130517
  Transmission Date: 20140414
  Serious: Yes (Death, Hospitalization)
  Sender: FDA-Public Use
  Company Number: US-INCYTE CORPORATION-2013IN000510

PATIENT
  Age: 81 Year
  Sex: Male

DRUGS (5)
  1. JAKAFI [Suspect]
     Indication: MYELOFIBROSIS
     Dosage: 5 MG, BID
     Route: 048
     Dates: end: 201303
  2. LISINOPRIL [Concomitant]
  3. GLIMEPIRIDE [Concomitant]
  4. ASPIRIN [Concomitant]
  5. FENOFIBRATE [Concomitant]

REACTIONS (3)
  - Death [Fatal]
  - Haemoglobin decreased [Unknown]
  - Platelet count decreased [Unknown]
